FAERS Safety Report 25517862 (Version 2)
Quarter: 2025Q3

REPORT INFORMATION
  Report Type: Spontaneous
  Country: US (occurrence: US)
  Receive Date: 20250704
  Receipt Date: 20250810
  Transmission Date: 20251020
  Serious: No
  Sender: ALEXION PHARMACEUTICALS
  Company Number: US-AstraZeneca-CH-00899159A

PATIENT
  Age: 73 Year

DRUGS (3)
  1. FASENRA [Suspect]
     Active Substance: BENRALIZUMAB
     Route: 065
  2. FASENRA [Suspect]
     Active Substance: BENRALIZUMAB
  3. FORTEO [Concomitant]
     Active Substance: TERIPARATIDE
     Route: 065

REACTIONS (2)
  - Product dose omission issue [Unknown]
  - Osteoporosis [Unknown]
